FAERS Safety Report 6053720-X (Version None)
Quarter: 2009Q1

REPORT INFORMATION
  Report Type: 
  Country: None (occurrence: None)
  Receive Date: 20090127
  Receipt Date: 20080827
  Transmission Date: 20090719
  Serious: Yes (Hospitalization)
  Sender: FDA-Public Use
  Company Number: US-TEVA-176632USA

PATIENT
  Age: 39 Year
  Sex: Female

DRUGS (2)
  1. COPAXONE [Suspect]
     Indication: MULTIPLE SCLEROSIS
     Route: 058
     Dates: start: 20070101
  2. NSAID'S [Suspect]
     Dates: start: 20080401

REACTIONS (6)
  - CYANOSIS [None]
  - FLUSHING [None]
  - HYPERSENSITIVITY [None]
  - PALPITATIONS [None]
  - RASH [None]
  - URTICARIA [None]
